FAERS Safety Report 5927329-X (Version None)
Quarter: 2008Q4

REPORT INFORMATION
  Report Type: 
  Country: None (occurrence: None)
  Receive Date: 20081022
  Receipt Date: 20081003
  Transmission Date: 20090506
  Serious: Yes (Other)
  Sender: FDA-Public Use
  Company Number: 8037051

PATIENT
  Age: 39 Year
  Sex: Male
  Weight: 113.12 kg

DRUGS (1)
  1. XYZAL [Suspect]
     Dosage: 10 MG /D PO
     Route: 048

REACTIONS (12)
  - AMNESIA [None]
  - BLOOD PRESSURE INCREASED [None]
  - COGNITIVE DISORDER [None]
  - CONFUSIONAL STATE [None]
  - FATIGUE [None]
  - FLUSHING [None]
  - HYPERHIDROSIS [None]
  - HYPERTENSION [None]
  - PARAESTHESIA [None]
  - PHARYNGEAL OEDEMA [None]
  - PYREXIA [None]
  - SINUS CONGESTION [None]
